FAERS Safety Report 9996329 (Version 4)
Quarter: 2014Q2

REPORT INFORMATION
  Report Type: Other
  Country: FR (occurrence: FR)
  Receive Date: 20140311
  Receipt Date: 20140617
  Transmission Date: 20141212
  Serious: Yes (Other)
  Sender: FDA-Public Use
  Company Number: FR-MPIJNJ-2014JNJ000638

PATIENT
  Sex: 0

DRUGS (8)
  1. VELCADE [Suspect]
     Indication: PLASMA CELL MYELOMA
     Dosage: 1.3 MG/M2, UNK
     Route: 058
     Dates: start: 20130610, end: 20131028
  2. REVLIMID [Suspect]
     Indication: PLASMA CELL MYELOMA
     Dosage: 25 UNK, UNK
     Route: 065
  3. REVLIMID [Suspect]
     Dosage: 10 MG, UNK
     Route: 048
     Dates: start: 20131204, end: 20131208
  4. ENDOXAN [Suspect]
     Indication: PLASMA CELL MYELOMA
     Dosage: 300 MG/M2, UNK
     Route: 042
     Dates: start: 20130610, end: 20131118
  5. DEXAMETHASONE [Suspect]
     Indication: PLASMA CELL MYELOMA
     Dosage: 20 MG, UNK
     Route: 065
     Dates: start: 201305, end: 20131108
  6. ALKERAN [Suspect]
     Indication: PLASMA CELL MYELOMA
     Dosage: 400 MG, UNK
     Route: 042
     Dates: start: 20080901, end: 20130201
  7. OSTEPAM [Concomitant]
     Indication: PLASMA CELL MYELOMA
     Route: 042
  8. SKENAN [Suspect]
     Indication: BONE PAIN
     Dosage: 30 MG, UNK
     Route: 048

REACTIONS (1)
  - Rectal adenocarcinoma [Not Recovered/Not Resolved]
